FAERS Safety Report 8156360-1 (Version None)
Quarter: 2012Q1

REPORT INFORMATION
  Report Type: 
  Country: None (occurrence: None)
  Receive Date: 20120222
  Receipt Date: 20120216
  Transmission Date: 20120608
  Serious: No
  Sender: FDA-Public Use
  Company Number: US-PFIZER INC-2012043600

PATIENT
  Sex: Female
  Weight: 49.9 kg

DRUGS (6)
  1. LYRICA [Suspect]
     Indication: FIBROMYALGIA
     Dosage: 100 MG, 2X/DAY
     Route: 048
  2. PAXIL [Concomitant]
     Indication: ANXIETY
     Dosage: 30 MG, 2X/DAY
  3. FLEXERIL [Concomitant]
     Indication: MUSCLE SPASMS
     Dosage: UNK
  4. ALPRAZOLAM [Suspect]
     Indication: NERVOUS SYSTEM DISORDER
     Dosage: 1 MG, AS NEEDED
     Route: 048
  5. TIZANIDINE [Concomitant]
     Indication: MUSCLE SPASMS
     Dosage: 4 MG, 2X/DAY
     Dates: start: 20120207
  6. TIZANIDINE [Concomitant]
     Indication: RESTLESS LEGS SYNDROME

REACTIONS (1)
  - POOR QUALITY DRUG ADMINISTERED [None]
